FAERS Safety Report 8209683-1 (Version None)
Quarter: 2012Q1

REPORT INFORMATION
  Report Type: 
  Country: None (occurrence: None)
  Receive Date: 20120228
  Receipt Date: 20110421
  Transmission Date: 20120608
  Serious: Yes (Other)
  Sender: FDA-Public Use
  Company Number: WAES 1007USA00262

PATIENT
  Age: 72 Year
  Sex: Male

DRUGS (3)
  1. ONGLYZA [Suspect]
     Indication: DIABETES MELLITUS
     Dosage: UNK/UNK/PO
     Route: 048
     Dates: end: 20100623
  2. PRINIVIL [Suspect]
     Indication: CARDIAC FAILURE CONGESTIVE
     Dosage: UNK/UNK/PO
     Route: 048
     Dates: end: 20100623
  3. SPIRONOLACTONE [Suspect]
     Indication: CARDIAC FAILURE CONGESTIVE
     Dosage: UNK/UNK/UNK
     Dates: end: 20100623

REACTIONS (1)
  - STEVENS-JOHNSON SYNDROME [None]
